FAERS Safety Report 16545355 (Version 1)
Quarter: 2019Q3

REPORT INFORMATION
  Report Type: Spontaneous
  Country: GB (occurrence: GB)
  Receive Date: 20190709
  Receipt Date: 20190709
  Transmission Date: 20191004
  Serious: Yes (Death)
  Sender: FDA-Public Use
  Company Number: GB-ALSI-201900297

PATIENT
  Sex: Male

DRUGS (2)
  1. OXYGEN. [Suspect]
     Active Substance: OXYGEN
     Indication: NEONATAL RESPIRATORY DISTRESS SYNDROME
  2. PORACTANT ALFA [Suspect]
     Active Substance: PORACTANT ALFA
     Route: 039

REACTIONS (2)
  - Pulmonary haemorrhage neonatal [Fatal]
  - General physical health deterioration [Fatal]
